FAERS Safety Report 4501915-6 (Version None)
Quarter: 2004Q4

REPORT INFORMATION
  Report Type: 
  Country: None (occurrence: None)
  Receive Date: 20041115
  Receipt Date: 20041025
  Transmission Date: 20050328
  Serious: Yes (Other)
  Sender: FDA-Public Use
  Company Number: 2004228987BR

PATIENT
  Age: 16 Year
  Sex: Male

DRUGS (4)
  1. GENOTROPIN [Suspect]
     Indication: BODY HEIGHT BELOW NORMAL
     Dosage: 5 U, QD, IV
     Route: 042
     Dates: start: 20040520, end: 20040801
  2. METICORTEN [Concomitant]
  3. EFFEXOR [Concomitant]
  4. FLUOXETINE HYDROCHLORIDE (FLUOXETIE HYDROCHLORIDE) [Concomitant]

REACTIONS (2)
  - BENIGN INTRACRANIAL HYPERTENSION [None]
  - RETINAL ARTERY THROMBOSIS [None]
